FAERS Safety Report 5086290-3 (Version None)
Quarter: 2006Q3

REPORT INFORMATION
  Report Type: 
  Country: None (occurrence: None)
  Receive Date: 20060703
  Receipt Date: 20051205
  Transmission Date: 20061208
  Serious: No
  Sender: FDA-Public Use
  Company Number: 2005S1011701

PATIENT
  Age: 66 Year
  Sex: Male

DRUGS (6)
  1. CLOZAPINE [Suspect]
     Indication: SCHIZOPHRENIA SIMPLE
     Dosage: 100 MG; HS; ORAL
     Route: 048
     Dates: start: 20010401, end: 20051115
  2. NIFEDIPINE [Concomitant]
  3. MAGNESIUM OXIDE [Concomitant]
  4. DEXAMETHASONE/ BENZALKONIUM CHLORIDE/ PHENYLMERCURIC NITRATE [Concomitant]
  5. VITAMIN B COMPLEX CAP [Concomitant]
  6. TOCOPHEROL CONCENTRATE CAP [Concomitant]

REACTIONS (1)
  - GRANULOCYTOPENIA [None]
